FAERS Safety Report 10077121 (Version 1)
Quarter: 2014Q2

REPORT INFORMATION
  Report Type: Report from Study
  Country: CA (occurrence: CA)
  Receive Date: 20140414
  Receipt Date: 20140414
  Transmission Date: 20141212
  Serious: Yes (Death)
  Sender: FDA-Public Use
  Company Number: PHHY2014CA045384

PATIENT
  Age: 66 Year
  Sex: Female

DRUGS (4)
  1. ACLASTA [Suspect]
     Indication: OSTEOPOROSIS
     Dosage: UNK
     Route: 042
     Dates: start: 20091218
  2. ACLASTA [Suspect]
     Dosage: UNK
     Route: 042
     Dates: start: 20110302
  3. ACLASTA [Suspect]
     Dosage: UNK
     Route: 042
     Dates: start: 20120307
  4. ACLASTA [Suspect]
     Dosage: UNK
     Route: 042
     Dates: start: 20130218

REACTIONS (1)
  - Death [Fatal]
